FAERS Safety Report 12579915 (Version 1)
Quarter: 2016Q3

REPORT INFORMATION
  Report Type: Spontaneous
  Country: US (occurrence: US)
  Receive Date: 20160721
  Receipt Date: 20160721
  Transmission Date: 20161109
  Serious: No
  Sender: FDA-Public Use
  Company Number: US-MEDA-2016070044

PATIENT
  Age: 53 Year
  Sex: Female

DRUGS (1)
  1. SOMA [Suspect]
     Active Substance: CARISOPRODOL

REACTIONS (1)
  - Drug intolerance [Unknown]
